FAERS Safety Report 6470795-4 (Version None)
Quarter: 2009Q4

REPORT INFORMATION
  Report Type: 
  Country: None (occurrence: None)
  Receive Date: 20091203
  Receipt Date: 20090710
  Transmission Date: 20100525
  Serious: No
  Sender: FDA-Public Use
  Company Number: US-ABBOTT-09P-163-0585225-00

PATIENT
  Sex: Female
  Weight: 83.99 kg

DRUGS (3)
  1. MERIDIA [Suspect]
     Indication: WEIGHT DECREASED
     Dosage: UNSURE OF STRENGTH
     Route: 048
     Dates: start: 20090501, end: 20090601
  2. CALCIUM SUPPLEMENT [Concomitant]
     Indication: MINERAL SUPPLEMENTATION
     Dosage: UNSURE OF STRENGTH
     Route: 048
  3. ALENDRONATE SODIUM [Concomitant]
     Indication: OSTEOPOROSIS
     Dosage: UNSURE OF STRENGTH
     Route: 048

REACTIONS (2)
  - DRUG INEFFECTIVE [None]
  - HAEMATOCHEZIA [None]
